FAERS Safety Report 7178479-4 (Version None)
Quarter: 2010Q4

REPORT INFORMATION
  Report Type: 
  Country: None (occurrence: None)
  Receive Date: 20101220
  Receipt Date: 20101215
  Transmission Date: 20110411
  Serious: Yes (Hospitalization)
  Sender: FDA-Public Use
  Company Number: US-AMGEN-USACT2010009135

PATIENT
  Sex: Male

DRUGS (17)
  1. FILGRASTIM [Suspect]
     Dosage: 480 A?G, QD
     Route: 065
     Dates: start: 20101007
  2. RITUXIMAB [Suspect]
     Dosage: 773 MG, QD
     Route: 042
     Dates: start: 20101007
  3. CYCLOPHOSPHAMIDE [Suspect]
     Dosage: 618 MG, QD
     Route: 042
     Dates: start: 20101007
  4. VINCRISTINE [Suspect]
     Dosage: 2 MG, QD
     Dates: start: 20101007
  5. ADRIAMYCIN PFS [Suspect]
     Dosage: 52 MG, QD
     Route: 042
     Dates: start: 20101007
  6. DEXAMETHASONE [Suspect]
     Dosage: 40 MG, QD
     Route: 048
     Dates: start: 20101007
  7. MESNA [Suspect]
     Dosage: 1236 MG, QD
     Route: 042
     Dates: start: 20101007
  8. ZOFRAN [Concomitant]
  9. PROPOXYPHENE HYDROCHLORIDE [Concomitant]
  10. HYDROXYZINE HCL [Concomitant]
  11. HYDROCODONE BITARTRATE [Concomitant]
  12. HOMATROPINE HYDROBROMIDE [Concomitant]
  13. DILAUDID [Concomitant]
  14. RANITIDINE [Concomitant]
  15. VALACICLOVIR [Concomitant]
  16. CIPROFLOXACIN [Concomitant]
  17. FLUCONAZOLE [Concomitant]

REACTIONS (4)
  - HAEMOPTYSIS [None]
  - HYPOXIA [None]
  - PNEUMONIA [None]
  - RASH [None]
